FAERS Safety Report 16291777 (Version 1)
Quarter: 2019Q2

REPORT INFORMATION
  Report Type: Spontaneous
  Country: CZ (occurrence: CZ)
  Receive Date: 20190509
  Receipt Date: 20190509
  Transmission Date: 20190711
  Serious: Yes (Other)
  Sender: FDA-Public Use
  Company Number: CZ-MYLANLABS-2018M1092754

PATIENT
  Age: 82 Year
  Sex: Female

DRUGS (1)
  1. PARACETAMOL/TRAMADOL [Suspect]
     Active Substance: ACETAMINOPHEN\TRAMADOL
     Indication: TUMOUR PAIN
     Dosage: UNK
     Route: 048

REACTIONS (4)
  - Gastrointestinal toxicity [Recovered/Resolved]
  - Restless legs syndrome [Recovered/Resolved]
  - Therapeutic product effect incomplete [Unknown]
  - Drug intolerance [Unknown]
